FAERS Safety Report 6141800-X (Version None)
Quarter: 2009Q2

REPORT INFORMATION
  Report Type: 
  Country: None (occurrence: None)
  Receive Date: 20090402
  Receipt Date: 20090126
  Transmission Date: 20091009
  Serious: No
  Sender: FDA-Public Use
  Company Number: US-ABBOTT-09P-163-0500237-00

PATIENT
  Sex: Female

DRUGS (2)
  1. LUPRON DEPOT [Suspect]
     Indication: UTERINE LEIOMYOMA
     Dates: start: 20081001
  2. BENICAR [Concomitant]
     Indication: HYPERTENSION

REACTIONS (2)
  - INSOMNIA [None]
  - MUSCULOSKELETAL PAIN [None]
